FAERS Safety Report 20705368 (Version 14)
Quarter: 2022Q4

REPORT INFORMATION
  Report Type: Report from Study
  Country: US (occurrence: US)
  Receive Date: 20220413
  Receipt Date: 20221208
  Transmission Date: 20230112
  Serious: Yes (Hospitalization)
  Sender: FDA-Public Use
  Company Number: US-NOVARTISTESTPH-NVSC2022US083193

PATIENT
  Sex: Female
  Weight: 7.937 kg

DRUGS (7)
  1. TREPROSTINIL [Suspect]
     Active Substance: TREPROSTINIL
     Indication: Pulmonary arterial hypertension
     Dosage: 55 NG/KG/MIN, CONT
     Route: 058
     Dates: start: 20211207
  2. TREPROSTINIL [Suspect]
     Active Substance: TREPROSTINIL
     Dosage: 55 NG/KG/MIN, CONT
     Route: 058
  3. TREPROSTINIL [Suspect]
     Active Substance: TREPROSTINIL
     Dosage: 55 NG/KG/MIN, CONT
     Route: 058
  4. TREPROSTINIL [Suspect]
     Active Substance: TREPROSTINIL
     Dosage: 55 NG/KG/MIN, CONT
     Route: 058
  5. TREPROSTINIL [Suspect]
     Active Substance: TREPROSTINIL
     Dosage: 38 NG/KG/MIN, CONT
     Route: 058
     Dates: end: 20221011
  6. REMODULIN [Suspect]
     Active Substance: TREPROSTINIL
     Indication: Product used for unknown indication
     Dosage: UNK
     Route: 065
     Dates: end: 20221011
  7. TRACLEER [Concomitant]
     Active Substance: BOSENTAN
     Indication: Product used for unknown indication
     Dosage: UNK
     Route: 065

REACTIONS (11)
  - Pulmonary hypertension [Unknown]
  - Urinary tract infection [Unknown]
  - Feeding intolerance [Unknown]
  - Viral infection [Unknown]
  - Dehydration [Unknown]
  - Vomiting [Unknown]
  - Rash [Unknown]
  - Illness [Unknown]
  - Cough [Unknown]
  - Crying [Unknown]
  - Nausea [Unknown]
